FAERS Safety Report 14929751 (Version 1)
Quarter: 2018Q2

REPORT INFORMATION
  Report Type: Spontaneous
  Country: FR (occurrence: FR)
  Receive Date: 20180523
  Receipt Date: 20180523
  Transmission Date: 20180711
  Serious: Yes (Hospitalization)
  Sender: FDA-Public Use
  Company Number: FR-TEVA-2018-FR-896539

PATIENT
  Age: 82 Year
  Sex: Female
  Weight: 50 kg

DRUGS (9)
  1. CORTANCYL 5 MG, COMPRIM? [Concomitant]
     Dosage: 1 DOSAGE FORMS DAILY;
     Route: 048
  2. AERIUS [Concomitant]
     Active Substance: DESLORATADINE
     Route: 048
  3. PANTOPRAZOLE [Concomitant]
     Active Substance: PANTOPRAZOLE
     Dosage: 15 MILLIGRAM DAILY;
     Route: 048
  4. MYTELASE 10 MG, COMPRIM? [Concomitant]
     Dosage: 7 DOSAGE FORMS DAILY;
     Route: 048
  5. ACUPAN [Concomitant]
     Active Substance: NEFOPAM HYDROCHLORIDE
     Route: 048
  6. VOGALENE [Concomitant]
     Active Substance: METOPIMAZINE
     Route: 048
  7. ZOLPIDEM [Suspect]
     Active Substance: ZOLPIDEM\ZOLPIDEM TARTRATE
     Indication: SUICIDE ATTEMPT
     Route: 048
     Dates: start: 20180124, end: 20180124
  8. DIFFU K, G?LULE [Concomitant]
     Active Substance: POTASSIUM CHLORIDE
     Dosage: 3 DOSAGE FORMS DAILY;
     Route: 048
  9. ESIDREX [Concomitant]
     Active Substance: HYDROCHLOROTHIAZIDE
     Route: 048

REACTIONS (1)
  - Altered state of consciousness [Recovered/Resolved]

NARRATIVE: CASE EVENT DATE: 20180124
